FAERS Safety Report 9661146 (Version 2)
Quarter: 2014Q1

REPORT INFORMATION
  Report Type: Report from Study
  Country: TN (occurrence: TN)
  Receive Date: 20131031
  Receipt Date: 20140204
  Transmission Date: 20141002
  Serious: Yes (Hospitalization)
  Sender: FDA-Public Use
  Company Number: TN-INCYTE CORPORATION-2013IN002530

PATIENT
  Age: 73 Year
  Sex: Male

DRUGS (3)
  1. INC424 [Suspect]
     Indication: MYELOFIBROSIS
     Dosage: 20 MG, BID
     Route: 048
     Dates: start: 20130503, end: 20130920
  2. INC424 [Suspect]
     Dosage: 10 MG, BID
     Route: 048
     Dates: start: 20130921, end: 20131018
  3. INC424 [Suspect]
     Dosage: UNK
     Route: 048
     Dates: start: 20131107

REACTIONS (1)
  - Dermo-hypodermitis [Recovering/Resolving]
